FAERS Safety Report 8136298-6 (Version None)
Quarter: 2012Q1

REPORT INFORMATION
  Report Type: 
  Country: None (occurrence: None)
  Receive Date: 20120214
  Receipt Date: 20120203
  Transmission Date: 20120608
  Serious: Yes (Hospitalization, Other)
  Sender: FDA-Public Use
  Company Number: SE-MEDIMMUNE-MEDI-0004206

PATIENT
  Sex: Female
  Weight: 8.8 kg

DRUGS (1)
  1. SYNAGIS [Suspect]
     Route: 030
     Dates: start: 20051027, end: 20051027

REACTIONS (2)
  - KAWASAKI'S DISEASE [None]
  - NASOPHARYNGITIS [None]
